FAERS Safety Report 15942621 (Version 3)
Quarter: 2019Q1

REPORT INFORMATION
  Report Type: Spontaneous
  Country: US (occurrence: US)
  Receive Date: 20190209
  Receipt Date: 20190228
  Transmission Date: 20190417
  Serious: Yes (Other)
  Sender: FDA-Public Use
  Company Number: US-ASTRAZENECA-2018SF00366

PATIENT
  Age: 19088 Day
  Sex: Male
  Weight: 119.5 kg

DRUGS (6)
  1. ASPIRIN. [Concomitant]
     Active Substance: ASPIRIN
  2. PANTOPRAZOLE [Concomitant]
     Active Substance: PANTOPRAZOLE
  3. PRILOSEC OTC [Suspect]
     Active Substance: OMEPRAZOLE MAGNESIUM
     Route: 048
     Dates: start: 20160403, end: 20190101
  4. ATORVASTATIN [Concomitant]
     Active Substance: ATORVASTATIN
  5. CLARITIN [Concomitant]
     Active Substance: LORATADINE
  6. FLUTICASONE. [Concomitant]
     Active Substance: FLUTICASONE

REACTIONS (3)
  - Chronic kidney disease [Unknown]
  - Renal injury [Unknown]
  - Renal failure [Unknown]

NARRATIVE: CASE EVENT DATE: 20131023
